FAERS Safety Report 15112553 (Version 1)
Quarter: 2018Q3

REPORT INFORMATION
  Report Type: Spontaneous
  Country: AT (occurrence: AT)
  Receive Date: 20180705
  Receipt Date: 20180705
  Transmission Date: 20181010
  Serious: Yes (Hospitalization, Other)
  Sender: FDA-Public Use
  Company Number: AT-009507513-00057807

PATIENT
  Age: 51 Year
  Sex: Female

DRUGS (10)
  1. FUSIDIC ACID [Concomitant]
     Active Substance: FUSIDIC ACID
     Indication: SOFT TISSUE INFECTION
     Dosage: 500 MG, TID
     Dates: start: 19991013
  2. INSULIN [Concomitant]
     Active Substance: INSULIN NOS
  3. FELODIPINE. [Concomitant]
     Active Substance: FELODIPINE
     Dosage: 10 MG, UNK
  4. TACROLIMUS. [Interacting]
     Active Substance: TACROLIMUS
     Indication: IMMUNOSUPPRESSION
     Dosage: 1?2 MG DAILY
     Dates: start: 199811
  5. AZATHIOPRINE. [Concomitant]
     Active Substance: AZATHIOPRINE
     Dosage: 75 MG, UNK
  6. FUSIDIC ACID [Concomitant]
     Active Substance: FUSIDIC ACID
     Indication: OSTEOMYELITIS
  7. ASPIRIN. [Concomitant]
     Active Substance: ASPIRIN
     Dosage: 100 MG, UNK
  8. SIMVASTATIN. [Suspect]
     Active Substance: SIMVASTATIN
     Indication: HYPERLIPIDAEMIA
     Dosage: 20 MG, QD
     Route: 048
     Dates: start: 19991004, end: 19991119
  9. SIMVASTATIN. [Interacting]
     Active Substance: SIMVASTATIN
     Dosage: 10 MG DAILY DOSE
     Route: 048
     Dates: end: 1999
  10. CITALOPRAM HYDROBROMIDE. [Concomitant]
     Active Substance: CITALOPRAM HYDROBROMIDE
     Dosage: 20 MG, UNK

REACTIONS (3)
  - Drug interaction [Recovered/Resolved]
  - Drug ineffective [Unknown]
  - Rhabdomyolysis [Recovered/Resolved]

NARRATIVE: CASE EVENT DATE: 1999
